FAERS Safety Report 6388007-9 (Version None)
Quarter: 2009Q4

REPORT INFORMATION
  Report Type: 
  Country: None (occurrence: None)
  Receive Date: 20091005
  Receipt Date: 20090921
  Transmission Date: 20100525
  Serious: Yes (Hospitalization, Other)
  Sender: FDA-Public Use
  Company Number: KR-MYLANLABS-2009S1016511

PATIENT
  Age: 59 Year
  Sex: Female

DRUGS (9)
  1. CIPROFLOXACIN HYDROCHLORIDE [Suspect]
     Indication: RENAL ABSCESS
     Dosage: ORAL CIPROFLOXACIN 1000MG/D FOR 5D
     Route: 048
  2. CIPROFLOXACIN HYDROCHLORIDE [Suspect]
     Dosage: IV CIPROFLOXACIN 400MG/D, WITH METRONIDAZOLE, FOR 10D
     Route: 042
  3. CIPROFLOXACIN HYDROCHLORIDE [Suspect]
     Dosage: CIPROFLOXACIN 1000MG/D, WITH METRONIDAZOLE, FOR 6D
  4. METRONIDAZOLE [Concomitant]
     Indication: RENAL ABSCESS
     Dosage: DOSAGE NOT STATED
  5. METRONIDAZOLE [Concomitant]
     Dosage: METRONIDAZOLE 1500MG/D FOR 6D
  6. LAMIVUDINE [Concomitant]
     Indication: ASCITES
     Dosage: LAMIVUDINE 100MG/D
  7. SPIRONOLACTONE [Concomitant]
     Indication: ASCITES
     Dosage: SPIRONOLACTONE 200MG/D
  8. FUROSEMIDE [Concomitant]
     Indication: ASCITES
     Dosage: FUROSEMIDE 20MG/D
  9. LACTULOSE [Concomitant]
     Indication: CONSTIPATION
     Dosage: LACTULOSE SYRUP 60ML/D

REACTIONS (2)
  - BALLISMUS [None]
  - MENTAL IMPAIRMENT [None]
